FAERS Safety Report 21020493 (Version 1)
Quarter: 2022Q2

REPORT INFORMATION
  Report Type: Spontaneous
  Country: US (occurrence: US)
  Receive Date: 20220629
  Receipt Date: 20220629
  Transmission Date: 20220721
  Serious: No
  Sender: FDA-Public Use
  Company Number: US-BAUSCH-BL-2022-015545

PATIENT
  Sex: Female

DRUGS (1)
  1. LACRISERT [Suspect]
     Active Substance: HYDROXYPROPYL CELLULOSE
     Indication: Product used for unknown indication
     Route: 065

REACTIONS (6)
  - Instillation site erythema [Unknown]
  - Instillation site pruritus [Unknown]
  - Instillation site swelling [Unknown]
  - Instillation site pain [Unknown]
  - Therapy interrupted [Unknown]
  - Product availability issue [Unknown]
